FAERS Safety Report 18141590 (Version 2)
Quarter: 2020Q3

REPORT INFORMATION
  Report Type: Spontaneous
  Country: US (occurrence: US)
  Receive Date: 20200812
  Receipt Date: 20200819
  Transmission Date: 20201103
  Serious: Yes (Death, Hospitalization)
  Sender: FDA-Public Use
  Company Number: US-KARYOPHARM THERAPEUTICS, INC.-2020KPT000788

PATIENT

DRUGS (1)
  1. XPOVIO [Suspect]
     Active Substance: SELINEXOR
     Indication: PLASMA CELL MYELOMA
     Dosage: 60 MG, WEEKLY
     Route: 048
     Dates: start: 20200713

REACTIONS (10)
  - Anaemia [Unknown]
  - Nausea [Unknown]
  - Thrombocytopenia [Unknown]
  - Death [Fatal]
  - Pain [Unknown]
  - Vomiting [Unknown]
  - Dyspnoea [Unknown]
  - Gastrointestinal haemorrhage [Unknown]
  - Transient aphasia [Unknown]
  - Dizziness [Recovered/Resolved]

NARRATIVE: CASE EVENT DATE: 2020
